FAERS Safety Report 9605914 (Version 3)
Quarter: 2014Q1

REPORT INFORMATION
  Report Type: Spontaneous
  Country: US (occurrence: US)
  Receive Date: 20131008
  Receipt Date: 20140224
  Transmission Date: 20141002
  Serious: Yes (Death, Hospitalization)
  Sender: FDA-Public Use
  Company Number: US-ACTELION-A-US2013-89346

PATIENT
  Age: 81 Year
  Sex: Female

DRUGS (22)
  1. TRACLEER [Suspect]
     Indication: PULMONARY ARTERIAL HYPERTENSION
     Dosage: 125 MG, BID
     Route: 048
     Dates: start: 201105
  2. TRACLEER [Suspect]
     Dosage: 62.5 MG, BID
     Route: 048
     Dates: start: 201104, end: 201105
  3. NIFEDIAC [Concomitant]
  4. KEPPRA [Concomitant]
  5. HYDROXYUREA [Concomitant]
  6. LOSARTAN [Concomitant]
  7. CITALOPRAM [Concomitant]
  8. FUROSEMIDE [Concomitant]
  9. NOVOLOG [Concomitant]
  10. LORTAB [Concomitant]
  11. HYDRALAZINE [Concomitant]
  12. ALPHAGAN [Concomitant]
  13. INDAPAMIDE [Concomitant]
  14. CLONIDINE [Concomitant]
  15. METOPROLOL [Concomitant]
  16. SIMVASTATIN [Concomitant]
  17. PLAVIX [Concomitant]
  18. ASPIRIN [Concomitant]
  19. LANTUS [Concomitant]
  20. ZOLPIDEM [Concomitant]
  21. SODIUM BICARBONATE [Concomitant]
  22. VITAMIN D [Concomitant]

REACTIONS (6)
  - Pulmonary embolism [Fatal]
  - Knee arthroplasty [Unknown]
  - Hypotension [Fatal]
  - Hypoxia [Fatal]
  - Unresponsive to stimuli [Fatal]
  - Pulse absent [Fatal]
